FAERS Safety Report 8072024-7 (Version None)
Quarter: 2011Q4

REPORT INFORMATION
  Report Type: 
  Country: None (occurrence: None)
  Receive Date: 20111221
  Receipt Date: 20110705
  Transmission Date: 20120403
  Serious: Yes (Life-Threatening, Hospitalization)
  Sender: FDA-Public Use
  Company Number: PHHY2011US45506

PATIENT
  Age: 68 Year
  Sex: Male

DRUGS (2)
  1. EXJADE [Suspect]
     Indication: HAEMOCHROMATOSIS
     Dosage: 500 MG, QD, ORAL
     Route: 048
     Dates: start: 20110526
  2. BLOOD AND RELATED PRODUCTS (NO INGREDIENTS/SUBSTANCES) [Concomitant]

REACTIONS (8)
  - CONFUSIONAL STATE [None]
  - AGITATION [None]
  - POLLAKIURIA [None]
  - GASTROINTESTINAL HAEMORRHAGE [None]
  - IRRITABILITY [None]
  - DIARRHOEA [None]
  - HAEMATOCHEZIA [None]
  - RECTAL HAEMORRHAGE [None]
